FAERS Safety Report 6368084 (Version 2)
Quarter: 2019Q4

REPORT INFORMATION
  Report Type: Spontaneous
  Country: US (occurrence: US)
  Receive Date: 20070726
  Receipt Date: 20191025
  Transmission Date: 20200122
  Serious: Yes (Death, Other)
  Sender: FDA-Public Use
  Company Number: US-PURDUE-USA_2007_0028413

PATIENT
  Age: 41 Year
  Sex: Female

DRUGS (1)
  1. OXYCONTIN [Suspect]
     Active Substance: OXYCODONE HYDROCHLORIDE
     Indication: PAIN
     Route: 048
     Dates: start: 20000728, end: 200007

REACTIONS (4)
  - Overdose [Fatal]
  - Haemoptysis [Unknown]
  - Drug dependence [Unknown]
  - Respiratory failure [Fatal]

NARRATIVE: CASE EVENT DATE: 20000730
